FAERS Safety Report 7372581-X (Version None)
Quarter: 2011Q1

REPORT INFORMATION
  Report Type: 
  Country: None (occurrence: None)
  Receive Date: 20110324
  Receipt Date: 20110321
  Transmission Date: 20110831
  Serious: Yes (Other)
  Sender: FDA-Public Use
  Company Number: GB-MERCK-1103GBR00095

PATIENT
  Age: 48 Year
  Sex: Female
  Weight: 59 kg

DRUGS (1)
  1. MAXALT [Suspect]
     Indication: MIGRAINE
     Route: 048

REACTIONS (9)
  - PHARYNGEAL HYPOAESTHESIA [None]
  - SPEECH DISORDER [None]
  - CHEST DISCOMFORT [None]
  - DYSPHAGIA [None]
  - HYPOAESTHESIA [None]
  - PAIN [None]
  - CHEST PAIN [None]
  - SENSATION OF HEAVINESS [None]
  - MUSCULAR WEAKNESS [None]
